FAERS Safety Report 6305339-0 (Version None)
Quarter: 2009Q3

REPORT INFORMATION
  Report Type: 
  Country: None (occurrence: None)
  Receive Date: 20090811
  Receipt Date: 20090807
  Transmission Date: 20100115
  Serious: Yes (Hospitalization, Disabling)
  Sender: FDA-Public Use
  Company Number: US-B.I. PHARMACEUTICALS,INC./RIDGEFIELD-2009-BP-09410BP

PATIENT
  Sex: Female

DRUGS (8)
  1. SPIRIVA [Suspect]
     Indication: EMPHYSEMA
     Dosage: 18 MCG
     Route: 055
     Dates: start: 20040101
  2. SPIRIVA [Suspect]
     Indication: ASTHMA
  3. ADVAIR HFA [Concomitant]
     Indication: EMPHYSEMA
     Dates: start: 20040101
  4. ADVAIR HFA [Concomitant]
     Indication: ASTHMA
  5. ROBAXIN [Concomitant]
     Indication: ANALGESIA
     Dates: start: 19980101
  6. CLONAZEPAN [Concomitant]
     Indication: ANALGESIA
     Dates: start: 19980101
  7. ALLEGRA [Concomitant]
     Indication: ANALGESIA
     Dates: start: 19980101
  8. PROPOXYPHENE HCL CAP [Concomitant]
     Indication: ANALGESIA
     Dates: start: 19980101

REACTIONS (4)
  - GAIT DISTURBANCE [None]
  - NERVE COMPRESSION [None]
  - PNEUMONIA [None]
  - SPINAL FUSION SURGERY [None]
